FAERS Safety Report 6675101-8 (Version None)
Quarter: 2010Q2

REPORT INFORMATION
  Report Type: 
  Country: None (occurrence: None)
  Receive Date: 20100409
  Receipt Date: 20100408
  Transmission Date: 20101027
  Serious: Yes (Other)
  Sender: FDA-Public Use
  Company Number: IT-ROXANE LABORATORIES, INC.-2010-RO-00397RO

PATIENT
  Age: 35 Year
  Sex: Male

DRUGS (5)
  1. TOPIRAMATE [Suspect]
     Indication: MIGRAINE PROPHYLAXIS
     Dosage: 75 MG
  2. PROPRANOLOL [Suspect]
     Indication: MIGRAINE PROPHYLAXIS
  3. AMITRIPTYLINE HCL [Suspect]
     Indication: MIGRAINE PROPHYLAXIS
  4. FLUNARIZINE [Suspect]
     Indication: MIGRAINE PROPHYLAXIS
  5. VALPROIC ACID [Suspect]
     Indication: MIGRAINE PROPHYLAXIS

REACTIONS (5)
  - ANXIETY [None]
  - COUGH [None]
  - DISTURBANCE IN ATTENTION [None]
  - NERVOUSNESS [None]
  - WEIGHT INCREASED [None]
